FAERS Safety Report 8052504-0 (Version None)
Quarter: 2012Q1

REPORT INFORMATION
  Report Type: 
  Country: None (occurrence: None)
  Receive Date: 20120118
  Receipt Date: 20120104
  Transmission Date: 20120608
  Serious: Yes (Other)
  Sender: FDA-Public Use
  Company Number: US-PFIZER INC-2012002993

PATIENT
  Sex: Female
  Weight: 75 kg

DRUGS (1)
  1. DILANTIN [Suspect]
     Indication: CONVULSION
     Dosage: 50 MG, 2X/DAY
     Route: 048
     Dates: start: 20080101

REACTIONS (3)
  - CONVULSION [None]
  - IMPAIRED DRIVING ABILITY [None]
  - ANXIETY [None]
